FAERS Safety Report 7682049-9 (Version None)
Quarter: 2011Q3

REPORT INFORMATION
  Report Type: 
  Country: None (occurrence: None)
  Receive Date: 20110809
  Receipt Date: 20110801
  Transmission Date: 20111222
  Serious: Yes (Other)
  Sender: FDA-Public Use
  Company Number: 2011SP036183

PATIENT
  Age: 36 Year
  Sex: Female
  Weight: 50 kg

DRUGS (1)
  1. IMPLANON [Suspect]
     Indication: CONTRACEPTION
     Dosage: SC
     Route: 058
     Dates: start: 20080707

REACTIONS (5)
  - INCORRECT DRUG ADMINISTRATION DURATION [None]
  - MENORRHAGIA [None]
  - DYSMENORRHOEA [None]
  - HYPERTENSION [None]
  - OVARIAN CYST [None]
